FAERS Safety Report 9236973 (Version 3)
Quarter: 2013Q4

REPORT INFORMATION
  Report Type: Spontaneous
  Country: GB (occurrence: None)
  Receive Date: 20130415
  Receipt Date: 20131010
  Transmission Date: 20140711
  Serious: Yes (Other)
  Sender: FDA-Public Use
  Company Number: AUR-APL-2013-03064

PATIENT
  Age: 77 Year
  Sex: Male
  Weight: 101.6 kg

DRUGS (4)
  1. RAMIPRIL (RAMIPRIL) [Suspect]
     Indication: PRODUCT USED FOR UNKNOWN INDICATION
     Dosage: 5 MG ( 5 MG, 1 IN 1 D), ORAL
     Route: 048
  2. VIAZEM XL [Suspect]
     Indication: PRODUCT USED FOR UNKNOWN INDICATION
     Dosage: STOPPED
  3. SYMBICORT [Concomitant]
  4. VENTOLIN (SALBUTAMOL) [Concomitant]

REACTIONS (5)
  - Dizziness [None]
  - Muscle spasms [None]
  - Orthostatic hypotension [None]
  - Pallor [None]
  - Pulse abnormal [None]
